FAERS Safety Report 26010446 (Version 1)
Quarter: 2025Q4

REPORT INFORMATION
  Report Type: Spontaneous
  Country: BR (occurrence: BR)
  Receive Date: 20251107
  Receipt Date: 20251107
  Transmission Date: 20260117
  Serious: Yes (Hospitalization)
  Sender: DAIICHI
  Company Number: BR-DSJP-DS-2025-173521-BR

PATIENT
  Age: 56 Year

DRUGS (3)
  1. ENHERTU [Suspect]
     Active Substance: FAM-TRASTUZUMAB DERUXTECAN-NXKI
     Indication: Breast cancer
     Dosage: UNK
     Route: 065
     Dates: start: 20221223
  2. ENHERTU [Suspect]
     Active Substance: FAM-TRASTUZUMAB DERUXTECAN-NXKI
     Dosage: UNK
     Route: 065
     Dates: start: 20240321
  3. DEXAMETHASONE [Concomitant]
     Active Substance: DEXAMETHASONE
     Indication: Breast cancer
     Dosage: 4 MG
     Route: 065
     Dates: start: 20250403

REACTIONS (6)
  - Dyspnoea [Unknown]
  - Cough [Unknown]
  - Dyspepsia [Unknown]
  - Faeces discoloured [Unknown]
  - Disease progression [Unknown]
  - Lung disorder [Unknown]

NARRATIVE: CASE EVENT DATE: 20240325
